FAERS Safety Report 16545087 (Version 1)
Quarter: 2019Q3

REPORT INFORMATION
  Report Type: Spontaneous
  Country: TN (occurrence: TN)
  Receive Date: 20190709
  Receipt Date: 20190709
  Transmission Date: 20191004
  Serious: Yes (Other)
  Sender: FDA-Public Use
  Company Number: TN-BIOGEN-2019BI00759262

PATIENT
  Age: 20 Year
  Sex: Male

DRUGS (1)
  1. AVONEX [Suspect]
     Active Substance: INTERFERON BETA-1A
     Indication: MULTIPLE SCLEROSIS
     Route: 065

REACTIONS (5)
  - Demyelination [Unknown]
  - Multiple sclerosis relapse [Unknown]
  - Muscular weakness [Unknown]
  - Amyotrophy [Unknown]
  - Quadriplegia [Unknown]

NARRATIVE: CASE EVENT DATE: 201706
